FAERS Safety Report 26120872 (Version 1)
Quarter: 2025Q4

REPORT INFORMATION
  Report Type: Spontaneous
  Country: US (occurrence: None)
  Receive Date: 20251204
  Receipt Date: 20251204
  Transmission Date: 20260117
  Serious: Yes (Death, Hospitalization)
  Sender: FDA-CTU
  Company Number: None

PATIENT
  Age: 63 Year
  Sex: Male
  Weight: 48 kg

DRUGS (2)
  1. CARBOPLATIN [Suspect]
     Active Substance: CARBOPLATIN
     Dates: end: 20201028
  2. PACLITAXEL [Suspect]
     Active Substance: PACLITAXEL
     Dates: end: 20201028

REACTIONS (1)
  - Oesophagectomy [None]

NARRATIVE: CASE EVENT DATE: 20210125
